FAERS Safety Report 22954167 (Version 2)
Quarter: 2023Q4

REPORT INFORMATION
  Report Type: Report from Study
  Country: US (occurrence: US)
  Receive Date: 20230918
  Receipt Date: 20231012
  Transmission Date: 20240110
  Serious: Yes (Hospitalization, Other)
  Sender: FDA-Public Use
  Company Number: US-BAUSCH-BL-2023-013691

PATIENT
  Age: 68 Year
  Sex: Female
  Weight: 47.67 kg

DRUGS (15)
  1. XIFAXAN [Suspect]
     Active Substance: RIFAXIMIN
     Indication: Hepatic encephalopathy
     Route: 048
     Dates: start: 202210
  2. LACTULOSE [Concomitant]
     Active Substance: LACTULOSE
     Indication: Hepatic encephalopathy
     Dates: start: 202210
  3. LACTULOSE [Concomitant]
     Active Substance: LACTULOSE
     Dosage: ORAL SOLUTION 10G/15ML
     Route: 048
  4. ZINC [Concomitant]
     Active Substance: ZINC
     Indication: Hepatic encephalopathy
     Dates: start: 202210
  5. BUMEX [Concomitant]
     Active Substance: BUMETANIDE
     Indication: Oedema
  6. SPIRONOLACTONE [Concomitant]
     Active Substance: SPIRONOLACTONE
     Indication: Oedema
     Route: 048
  7. ELIQUIS [Concomitant]
     Active Substance: APIXABAN
     Indication: Cardiac failure congestive
  8. METOPROLOL [Concomitant]
     Active Substance: METOPROLOL
     Indication: Cardiac failure congestive
  9. TRAMADOL [Concomitant]
     Active Substance: TRAMADOL\TRAMADOL HYDROCHLORIDE
     Indication: Product used for unknown indication
     Dosage: EVERY 4 HOURS AS NEEDED
     Route: 048
  10. HYDROXYZINE HYDROCHLORIDE [Concomitant]
     Active Substance: HYDROXYZINE HYDROCHLORIDE
     Indication: Product used for unknown indication
     Route: 048
  11. VITAMINS NOS [Concomitant]
     Active Substance: VITAMINS
     Indication: Product used for unknown indication
     Route: 048
  12. AMBIEN [Concomitant]
     Active Substance: ZOLPIDEM TARTRATE
     Indication: Product used for unknown indication
  13. FUROSEMIDE [Concomitant]
     Active Substance: FUROSEMIDE
     Indication: Product used for unknown indication
     Route: 048
  14. TWINRIX [Concomitant]
     Active Substance: HEPATITIS A VIRUS STRAIN HM175 ANTIGEN (FORMALDEHYDE INACTIVATED)\HEPATITIS B VIRUS SUBTYPE ADW2 HBS
     Indication: Product used for unknown indication
     Dosage: TWINRIX (PF) 720 ELISA UNIT?INTRAMUSCULAR SYRINGE (AS ADMINISTERED)
  15. FAMOTIDINE [Concomitant]
     Active Substance: FAMOTIDINE
     Indication: Product used for unknown indication
     Route: 048

REACTIONS (18)
  - Norovirus infection [Unknown]
  - Hepatic encephalopathy [Unknown]
  - Disease recurrence [Unknown]
  - Sepsis [Recovered/Resolved]
  - Hypothyroidism [Unknown]
  - Skin cancer [Unknown]
  - Portal hypertension [Unknown]
  - Thrombocytopenia [Unknown]
  - Clostridium difficile infection [Unknown]
  - Sarcopenia [Unknown]
  - Body mass index decreased [Unknown]
  - Thyroid mass [Unknown]
  - Hepatic steatosis [Unknown]
  - Liver function test abnormal [Unknown]
  - Imaging procedure abnormal [Unknown]
  - Abdominal distension [Unknown]
  - Inability to afford medication [Unknown]
  - Insurance issue [Unknown]

NARRATIVE: CASE EVENT DATE: 20220101
